FAERS Safety Report 15299478 (Version 1)
Quarter: 2018Q3

REPORT INFORMATION
  Report Type: Spontaneous
  Country: DE (occurrence: DE)
  Receive Date: 20180821
  Receipt Date: 20180821
  Transmission Date: 20181010
  Serious: Yes (Other)
  Sender: FDA-Public Use
  Company Number: DE-TEVA-2018-DE-945276

PATIENT
  Age: 63 Year
  Sex: Female

DRUGS (12)
  1. GABAPENTIN. [Suspect]
     Active Substance: GABAPENTIN
     Dosage: 1000 MILLIGRAM DAILY;
     Route: 048
     Dates: start: 20171130, end: 20171211
  2. TORASEMID [Concomitant]
     Active Substance: TORSEMIDE
     Dosage: 10 MILLIGRAM DAILY;
  3. GABAPENTIN. [Suspect]
     Active Substance: GABAPENTIN
     Dosage: 900 MILLIGRAM DAILY;
     Route: 048
     Dates: start: 20171129, end: 20171129
  4. MELPERON [Concomitant]
     Active Substance: MELPERONE
     Dosage: 25 MILLIGRAM DAILY;
     Route: 048
     Dates: start: 20171201, end: 20180108
  5. GABAPENTIN. [Suspect]
     Active Substance: GABAPENTIN
     Dosage: 700 MILLIGRAM DAILY;
     Route: 048
     Dates: end: 20171128
  6. GABAPENTIN. [Suspect]
     Active Substance: GABAPENTIN
     Dosage: 300 MILLIGRAM DAILY;
     Route: 048
     Dates: start: 20171219
  7. GABAPENTIN. [Suspect]
     Active Substance: GABAPENTIN
     Dosage: 600 MILLIGRAM DAILY;
     Route: 048
     Dates: start: 20171212, end: 20171218
  8. SIMVASTATIN. [Concomitant]
     Active Substance: SIMVASTATIN
     Dosage: 20 MILLIGRAM DAILY;
     Route: 048
  9. METOPROLOL. [Concomitant]
     Active Substance: METOPROLOL
     Dosage: 50 MILLIGRAM DAILY;
     Route: 048
  10. PANTOPRAZOL [Concomitant]
     Active Substance: PANTOPRAZOLE SODIUM
     Dosage: 20 MILLIGRAM DAILY;
     Route: 048
  11. L?THYROXIN [Concomitant]
     Active Substance: LEVOTHYROXINE SODIUM
     Dosage: 25 MICROGRAM DAILY;
  12. CANDESARTAN. [Concomitant]
     Active Substance: CANDESARTAN
     Dosage: 2 MILLIGRAM DAILY;
     Route: 048

REACTIONS (2)
  - Aphasia [Recovered/Resolved]
  - Speech disorder [Recovered/Resolved]

NARRATIVE: CASE EVENT DATE: 20171201
